FAERS Safety Report 8524654-3 (Version None)
Quarter: 2012Q3

REPORT INFORMATION
  Report Type: 
  Country: None (occurrence: None)
  Receive Date: 20120720
  Receipt Date: 20120709
  Transmission Date: 20120928
  Serious: Yes (Other)
  Sender: FDA-Public Use
  Company Number: US-ROCHE-1055158

PATIENT
  Sex: Male
  Weight: 83.082 kg

DRUGS (10)
  1. ASPIRIN [Concomitant]
     Route: 048
  2. SIMVASTATIN [Concomitant]
  3. TERAZOSIN HCL [Concomitant]
  4. ASCORBIC ACID [Concomitant]
  5. ZELBORAF [Suspect]
     Indication: MALIGNANT MELANOMA STAGE IV
     Route: 048
     Dates: start: 20120209
  6. PREDNISONE [Concomitant]
     Route: 048
  7. HYTRIN [Concomitant]
     Route: 048
  8. ZELBORAF [Suspect]
     Route: 048
     Dates: start: 20120219
  9. IMDUR [Concomitant]
     Route: 048
  10. METOPROLOL SUCCINATE [Concomitant]
     Route: 048

REACTIONS (13)
  - PAIN IN EXTREMITY [None]
  - FEELING ABNORMAL [None]
  - RASH [None]
  - CONSTIPATION [None]
  - MASS [None]
  - PLANTAR FASCIITIS [None]
  - DECREASED APPETITE [None]
  - SQUAMOUS CELL CARCINOMA [None]
  - ARTHRALGIA [None]
  - FATIGUE [None]
  - NASOPHARYNGITIS [None]
  - ALOPECIA [None]
  - DYSGEUSIA [None]
